FAERS Safety Report 8256356-5 (Version None)
Quarter: 2012Q2

REPORT INFORMATION
  Report Type: 
  Country: None (occurrence: None)
  Receive Date: 20120402
  Receipt Date: 20120402
  Transmission Date: 20120825
  Serious: No
  Sender: FDA-Public Use
  Company Number: None

PATIENT
  Sex: Male
  Weight: 113.3993 kg

DRUGS (2)
  1. OXYCODONE HCL [Suspect]
     Indication: ARTHROSCOPY
     Dosage: #40  1 Q 4-6 PRN
     Dates: start: 20120322
  2. OXYCODONE HCL [Suspect]
     Indication: TENODESIS
     Dosage: #40  1 Q 4-6 PRN
     Dates: start: 20120322

REACTIONS (1)
  - VOMITING [None]
